FAERS Safety Report 18986268 (Version 1)
Quarter: 2021Q1

REPORT INFORMATION
  Report Type: Spontaneous
  Country: US (occurrence: US)
  Receive Date: 20210308
  Receipt Date: 20210308
  Transmission Date: 20210420
  Serious: Yes (Death)
  Sender: FDA-Public Use
  Company Number: None

PATIENT
  Age: 88 Year
  Sex: Female

DRUGS (10)
  1. VELTASSA [Suspect]
     Active Substance: PATIROMER
     Indication: HYPERKALAEMIA
     Route: 048
     Dates: start: 20191021, end: 20210305
  2. IRON 325MG [Concomitant]
  3. ALBUTEROL 8.5GM [Concomitant]
  4. FUROSEMIDE 40MG [Concomitant]
     Active Substance: FUROSEMIDE
  5. ATORVASTATIN 20MG [Concomitant]
     Active Substance: ATORVASTATIN
  6. MIRTAZAPINE 7.5MG [Concomitant]
     Active Substance: MIRTAZAPINE
  7. ASPIRIN 81MG [Concomitant]
     Active Substance: ASPIRIN
  8. PANTOPRAZOLE 40MG [Concomitant]
     Active Substance: PANTOPRAZOLE SODIUM
  9. SPIRIVA 18MCG [Concomitant]
  10. ADVAIR DISKUS 500/50MCG [Concomitant]

REACTIONS (1)
  - Death [None]

NARRATIVE: CASE EVENT DATE: 20210305
